FAERS Safety Report 8784691 (Version 1)
Quarter: 2012Q4

REPORT INFORMATION
  Report Type: Spontaneous
  Country: US (occurrence: None)
  Receive Date: 20120831
  Receipt Date: 20120831
  Transmission Date: 20130627
  Serious: Yes (Life-Threatening, Hospitalization, Other)
  Sender: FDA-Public Use
  Company Number: 138311

PATIENT
  Age: 61 Year

DRUGS (1)
  1. ADRIAMYCIN [Suspect]
     Indication: MYELOMA

REACTIONS (4)
  - Renal failure acute [None]
  - Hyperglycaemia [None]
  - Deep vein thrombosis [None]
  - Subclavian vein thrombosis [None]
